FAERS Safety Report 6561846-7 (Version None)
Quarter: 2010Q1

REPORT INFORMATION
  Report Type: 
  Country: None (occurrence: None)
  Receive Date: 20100130
  Receipt Date: 20091030
  Transmission Date: 20100710
  Serious: No
  Sender: FDA-Public Use
  Company Number: US-ABBOTT-09P-163-0606656-00

PATIENT
  Sex: Female
  Weight: 81.72 kg

DRUGS (3)
  1. HUMIRA [Suspect]
     Indication: RHEUMATOID ARTHRITIS
     Route: 058
     Dates: start: 20050101
  2. LEVOTHYROXINE SODIUM [Concomitant]
     Indication: HYPOTHYROIDISM
  3. ASMANEX TWISTHALER [Concomitant]
     Indication: PULMONARY FIBROSIS
     Dosage: UNKNOWN
     Route: 055

REACTIONS (2)
  - JOINT EFFUSION [None]
  - MUSCULOSKELETAL PAIN [None]
